FAERS Safety Report 12459285 (Version 1)
Quarter: 2016Q2

REPORT INFORMATION
  Report Type: Spontaneous
  Country: US (occurrence: None)
  Receive Date: 20160610
  Receipt Date: 20160610
  Transmission Date: 20160815
  Serious: No
  Sender: FDA-Public Use
  Company Number: None

PATIENT
  Age: 57 Year
  Sex: Male
  Weight: 82.56 kg

DRUGS (1)
  1. ESOMEPRAZOLE 40MG ASTRAZENECA [Suspect]
     Active Substance: ESOMEPRAZOLE
     Indication: GASTROOESOPHAGEAL REFLUX DISEASE
     Dosage: 1 CAP (40MG) DAILY ORAL
     Route: 048
     Dates: start: 20150620, end: 20160605

REACTIONS (7)
  - Chest pain [None]
  - Anorectal discomfort [None]
  - Insomnia [None]
  - Headache [None]
  - Drug ineffective [None]
  - Fatigue [None]
  - Diarrhoea [None]
